FAERS Safety Report 6565622-0 (Version None)
Quarter: 2010Q1

REPORT INFORMATION
  Report Type: 
  Country: None (occurrence: None)
  Receive Date: 20100201
  Receipt Date: 20091218
  Transmission Date: 20100710
  Serious: Yes (Hospitalization)
  Sender: FDA-Public Use
  Company Number: US-BAXTER-2009BH013217

PATIENT
  Age: 65 Year
  Sex: Male
  Weight: 81 kg

DRUGS (2)
  1. HEPARIN SODIUM INJECTION [Suspect]
     Indication: ARTERIAL BYPASS OPERATION
     Route: 042
     Dates: start: 20080130
  2. DAILY MULTIVITAMIN [Concomitant]
     Indication: DRUG USE FOR UNKNOWN INDICATION
     Route: 065

REACTIONS (9)
  - ABASIA [None]
  - ABDOMINAL PAIN [None]
  - BLOOD PRESSURE DECREASED [None]
  - CONFUSIONAL STATE [None]
  - HYPERSENSITIVITY [None]
  - HYPOTENSION [None]
  - MALAISE [None]
  - PYREXIA [None]
  - SYNCOPE [None]
